FAERS Safety Report 9287819 (Version 2)
Quarter: 2013Q3

REPORT INFORMATION
  Report Type: Spontaneous
  Country: US (occurrence: US)
  Receive Date: 20130514
  Receipt Date: 20130925
  Transmission Date: 20140515
  Serious: No
  Sender: FDA-Public Use
  Company Number: US-PFIZER INC-2013146294

PATIENT
  Age: 42 Year
  Sex: Female

DRUGS (6)
  1. LYRICA [Suspect]
     Dosage: 50 MG, AS NEEDED (TID)
     Route: 048
  2. SUBOXONE [Concomitant]
     Dosage: 2 MG-0.5 MG, 2X/DAY
     Route: 060
     Dates: start: 20130813
  3. PHENOBARBITAL [Concomitant]
     Indication: CONVULSION
     Dosage: 129.6 MG, 1X/DAY (64.8 MG TABLET, 2 TABLET(S), QHS)
     Route: 048
  4. RITALIN [Concomitant]
     Dosage: 20 MG, 2X/DAY
     Route: 048
     Dates: start: 20130719, end: 20130817
  5. ARMOUR THYROID [Concomitant]
     Dosage: 45 MG, 1X/DAY (15MG TABLET, 3 TABLET(S), QAM.)
     Route: 048
  6. ARICEPT [Concomitant]
     Dosage: 10 MG, 1X/DAY (QHS)
     Route: 048

REACTIONS (10)
  - Increased appetite [Unknown]
  - Intentional drug misuse [Unknown]
  - Hypoaesthesia [Unknown]
  - Temperature intolerance [Unknown]
  - Vision blurred [Unknown]
  - Headache [Unknown]
  - Anxiety [Unknown]
  - Amnesia [Unknown]
  - Pain [Unknown]
  - Feeling abnormal [Unknown]
